FAERS Safety Report 15931910 (Version 2)
Quarter: 2019Q1

REPORT INFORMATION
  Report Type: Spontaneous
  Country: US (occurrence: US)
  Receive Date: 20190207
  Receipt Date: 20190218
  Transmission Date: 20190417
  Serious: Yes (Other)
  Sender: FDA-Public Use
  Company Number: US-ASTRAZENECA-2018SF65489

PATIENT
  Age: 578 Month
  Sex: Male
  Weight: 96.2 kg

DRUGS (5)
  1. METOCLOPRAMIDE HYDROCHLORIDE. [Concomitant]
     Active Substance: METOCLOPRAMIDE HYDROCHLORIDE
  2. RENAGEL [Concomitant]
     Active Substance: SEVELAMER HYDROCHLORIDE
  3. NEXIUM 24HR [Suspect]
     Active Substance: ESOMEPRAZOLE MAGNESIUM
     Route: 048
  4. PRILOSEC OTC [Suspect]
     Active Substance: OMEPRAZOLE MAGNESIUM
     Route: 048
     Dates: start: 2003
  5. LISINOPRIL. [Concomitant]
     Active Substance: LISINOPRIL

REACTIONS (6)
  - End stage renal disease [Unknown]
  - Acute kidney injury [Unknown]
  - Renal failure [Unknown]
  - Renal injury [Unknown]
  - Rebound acid hypersecretion [Unknown]
  - Chronic kidney disease [Unknown]

NARRATIVE: CASE EVENT DATE: 201408
